FAERS Safety Report 9398140 (Version 2)
Quarter: 2013Q3

REPORT INFORMATION
  Report Type: Spontaneous
  Country: US (occurrence: US)
  Receive Date: 20130712
  Receipt Date: 20130718
  Transmission Date: 20140515
  Serious: Yes (Death, Hospitalization)
  Sender: FDA-Public Use
  Company Number: US-JNJFOC-20130707659

PATIENT
  Sex: Male

DRUGS (1)
  1. XARELTO [Suspect]
     Indication: DEEP VEIN THROMBOSIS
     Route: 048

REACTIONS (5)
  - Death [Fatal]
  - Therapeutic procedure [Unknown]
  - Pulmonary haemorrhage [Unknown]
  - Haemorrhage [Unknown]
  - General physical health deterioration [Unknown]
